FAERS Safety Report 24067213 (Version 1)
Quarter: 2024Q3

REPORT INFORMATION
  Report Type: Report from Study
  Country: US (occurrence: US)
  Receive Date: 20240709
  Receipt Date: 20240709
  Transmission Date: 20241017
  Serious: No
  Sender: ROCHE
  Company Number: US-ROCHE-10000016869

PATIENT
  Age: 49 Year
  Sex: Female

DRUGS (1)
  1. OCREVUS [Suspect]
     Active Substance: OCRELIZUMAB
     Indication: Multiple sclerosis
     Dosage: INFUSE 300 MG DAY 1, THEN 300MG DAY 15
     Route: 065
     Dates: start: 20180810, end: 20231026

REACTIONS (5)
  - Therapeutic response decreased [Unknown]
  - Balance disorder [Unknown]
  - Paraesthesia [Unknown]
  - Incontinence [Unknown]
  - COVID-19 [Unknown]
